FAERS Safety Report 9257039 (Version 1)
Quarter: 2013Q2

REPORT INFORMATION
  Report Type: Spontaneous
  Country: BR (occurrence: BR)
  Receive Date: 20130426
  Receipt Date: 20130426
  Transmission Date: 20140414
  Serious: Yes (Other)
  Sender: FDA-Public Use
  Company Number: BR-JNJFOC-20130411172

PATIENT
  Sex: 0

DRUGS (1)
  1. REMICADE [Suspect]
     Indication: ANKYLOSING SPONDYLITIS
     Route: 042
     Dates: end: 2012

REACTIONS (1)
  - Spinal operation [Unknown]
